FAERS Safety Report 21018485 (Version 1)
Quarter: 2022Q2

REPORT INFORMATION
  Report Type: Spontaneous
  Country: US (occurrence: None)
  Receive Date: 20220628
  Receipt Date: 20220628
  Transmission Date: 20220721
  Serious: Yes (Death)
  Sender: FDA-Public Use
  Company Number: None

PATIENT
  Age: 0 Year
  Sex: Male
  Weight: 9 kg

DRUGS (9)
  1. BUSULFAN [Suspect]
     Active Substance: BUSULFAN
     Dates: end: 20211120
  2. CYTARABINE [Suspect]
     Active Substance: CYTARABINE
     Dates: end: 20211005
  3. DAUNORUBICIN [Suspect]
     Active Substance: DAUNORUBICIN
     Dates: end: 20210824
  4. ZINECARD [Suspect]
     Active Substance: DEXRAZOXANE HYDROCHLORIDE
     Dates: end: 20210824
  5. ETOPOSIDE [Suspect]
     Active Substance: ETOPOSIDE
     Dates: end: 20211005
  6. FLUDARABINE PHOSPHATE [Suspect]
     Active Substance: FLUDARABINE PHOSPHATE
     Dates: end: 20211120
  7. MYLOTARG [Suspect]
     Active Substance: GEMTUZUMAB OZOGAMICIN
     Dates: end: 20210718
  8. HYDROCORTISONE [Suspect]
     Active Substance: HYDROCORTISONE
     Dates: end: 20210917
  9. METHOTREXATE [Suspect]
     Active Substance: METHOTREXATE
     Dates: end: 20210917

REACTIONS (5)
  - Unresponsive to stimuli [None]
  - Electrolyte imbalance [None]
  - Acute graft versus host disease in intestine [None]
  - Bile culture positive [None]
  - Laboratory test interference [None]

NARRATIVE: CASE EVENT DATE: 20210110
